FAERS Safety Report 8984007 (Version 1)
Quarter: 2012Q4

REPORT INFORMATION
  Report Type: Spontaneous
  Country: PL (occurrence: None)
  Receive Date: 20121212
  Receipt Date: 20121212
  Transmission Date: 20130627
  Serious: Yes (Life-Threatening)
  Sender: FDA-Public Use
  Company Number: PL-ACCORD-015521

PATIENT
  Age: 47 Year
  Sex: Female
  Weight: 62 kg

DRUGS (1)
  1. PACLITAXEL (PACLITAXEL) [Suspect]
     Indication: MALIGNANT NEOPLASM OF OVARY
     Route: 042
     Dates: start: 20121121, end: 20121121

REACTIONS (4)
  - Dizziness [None]
  - Dyspnoea [None]
  - Hypersensitivity [None]
  - Erythema [None]
